FAERS Safety Report 4449586-1 (Version None)
Quarter: 2004Q3

REPORT INFORMATION
  Report Type: 
  Country: None (occurrence: None)
  Receive Date: 20040913
  Receipt Date: 20040913
  Transmission Date: 20050211
  Serious: Yes (Congenital Anomaly, Other)
  Sender: FDA-Public Use
  Company Number: None

PATIENT
  Age: 6 Year
  Sex: Male
  Weight: 23.1334 kg

DRUGS (1)
  1. PAXIL [Suspect]
     Indication: DEPRESSION
     Dosage: 10 MG 1TSP THEN 2 @ PM ORAL
     Route: 048
     Dates: start: 20010421, end: 20010601

REACTIONS (2)
  - ABNORMAL BEHAVIOUR [None]
  - THINKING ABNORMAL [None]
